FAERS Safety Report 5138735-8 (Version None)
Quarter: 2006Q4

REPORT INFORMATION
  Report Type: 
  Country: None (occurrence: None)
  Receive Date: 20061030
  Receipt Date: 20061026
  Transmission Date: 20070319
  Serious: Yes (Hospitalization)
  Sender: FDA-Public Use
  Company Number: US-MERCK-0610USA13898

PATIENT
  Age: 76 Year
  Sex: Male

DRUGS (4)
  1. DECADRON [Suspect]
     Indication: MULTIPLE MYELOMA
     Route: 048
     Dates: start: 20060615
  2. REVLIMID [Concomitant]
     Indication: MULTIPLE MYELOMA
     Route: 048
     Dates: start: 20060615, end: 20060701
  3. REVLIMID [Concomitant]
     Route: 048
  4. REVLIMID [Concomitant]
     Route: 048

REACTIONS (2)
  - BLOOD TEST ABNORMAL [None]
  - GENERAL PHYSICAL HEALTH DETERIORATION [None]
